FAERS Safety Report 6917589-0 (Version None)
Quarter: 2010Q3

REPORT INFORMATION
  Report Type: 
  Country: None (occurrence: None)
  Receive Date: 20100810
  Receipt Date: 20100803
  Transmission Date: 20110219
  Serious: Yes (Other)
  Sender: FDA-Public Use
  Company Number: CHPA2010JP12723

PATIENT
  Sex: Male

DRUGS (2)
  1. NICOTINELL TTS (NCH) [Suspect]
     Indication: SMOKING CESSATION THERAPY
     Dosage: 35 MG, QD
     Route: 062
     Dates: start: 20100701, end: 20100701
  2. NICOTINELL TTS (NCH) [Suspect]
     Dosage: 17.5 MG, QD
     Route: 062
     Dates: start: 20100701

REACTIONS (1)
  - AGEUSIA [None]
